FAERS Safety Report 21763201 (Version 1)
Quarter: 2022Q4

REPORT INFORMATION
  Report Type: Spontaneous
  Country: US (occurrence: None)
  Receive Date: 20221221
  Receipt Date: 20221221
  Transmission Date: 20230113
  Serious: Yes (Hospitalization)
  Sender: FDA-Public Use
  Company Number: None

PATIENT
  Sex: Female
  Weight: 58.3 kg

DRUGS (6)
  1. CYCLOPHOSPHAMIDE [Suspect]
     Active Substance: CYCLOPHOSPHAMIDE
     Dates: end: 20221130
  2. CYTARABINE [Suspect]
     Active Substance: CYTARABINE
     Dates: end: 20221210
  3. MERCAPTOPURINE [Suspect]
     Active Substance: MERCAPTOPURINE
     Dates: end: 20221213
  4. METHOTREXATE [Suspect]
     Active Substance: METHOTREXATE
     Dates: end: 20221109
  5. ONCASPAR [Suspect]
     Active Substance: PEGASPARGASE
     Dates: end: 20221214
  6. VINCRISTINE SULFATE [Suspect]
     Active Substance: VINCRISTINE SULFATE
     Dates: end: 20221109

REACTIONS (6)
  - Abdominal pain [None]
  - Vomiting [None]
  - Tachycardia [None]
  - Pulse absent [None]
  - Resuscitation [None]
  - Cardioversion [None]

NARRATIVE: CASE EVENT DATE: 20221214
